FAERS Safety Report 8685356 (Version 2)
Quarter: 2012Q4

REPORT INFORMATION
  Report Type: 
  Country: US (occurrence: US)
  Receive Date: 20120726
  Receipt Date: 20120830
  Transmission Date: 20130627
  Serious: Yes (Hospitalization)
  Sender: FDA-Public Use
  Company Number: US-ACTELION-A-NJ2011-56224

PATIENT
  Age: 79 Year
  Sex: Female

DRUGS (3)
  1. TRACLEER [Suspect]
     Indication: PULMONARY ARTERIAL HYPERTENSION
     Dosage: UNK
     Route: 048
     Dates: start: 20110116
  2. REVATIO [Concomitant]
  3. TYVASO [Concomitant]

REACTIONS (3)
  - Fall [Recovering/Resolving]
  - Dizziness [Unknown]
  - Syncope [Recovering/Resolving]
